FAERS Safety Report 20895828 (Version 1)
Quarter: 2022Q2

REPORT INFORMATION
  Report Type: Report from Study
  Country: BR (occurrence: BR)
  Receive Date: 20220531
  Receipt Date: 20220531
  Transmission Date: 20220721
  Serious: Yes (Other)
  Sender: FDA-Public Use
  Company Number: BR-NOVARTISPH-NVSC2022BR103189

PATIENT
  Sex: Female
  Weight: 76 kg

DRUGS (2)
  1. COSENTYX [Suspect]
     Active Substance: SECUKINUMAB
     Indication: Ankylosing spondylitis
     Dosage: 1 DOSAGE FORM, QMO(1PEN, ROUTE: LEG, BELLY OR ARM)
     Route: 065
     Dates: start: 202009
  2. CIMZIA [Concomitant]
     Active Substance: CERTOLIZUMAB PEGOL
     Indication: Ankylosing spondylitis
     Dosage: 1 DOSAGE FORM, Q2W (1 SYRINGE, ONCE EVERY 14 DAYS)
     Route: 065
     Dates: start: 202009

REACTIONS (3)
  - Hepatic steatosis [Not Recovered/Not Resolved]
  - Weight increased [Recovering/Resolving]
  - Fibromyalgia [Not Recovered/Not Resolved]

NARRATIVE: CASE EVENT DATE: 20200101
